FAERS Safety Report 4692756-8 (Version None)
Quarter: 2005Q2

REPORT INFORMATION
  Report Type: 
  Country: None (occurrence: None)
  Receive Date: 20050617
  Receipt Date: 20050609
  Transmission Date: 20051028
  Serious: Yes (Other)
  Sender: FDA-Public Use
  Company Number: CZ-GLAXOSMITHKLINE-B0384614A

PATIENT
  Age: 4 Year
  Sex: Male

DRUGS (1)
  1. AUGMENTIN '125' [Suspect]
     Dosage: 3.5ML TWICE PER DAY
     Route: 048

REACTIONS (2)
  - RASH MACULO-PAPULAR [None]
  - VIRAL INFECTION [None]
